FAERS Safety Report 6523912-1 (Version None)
Quarter: 2009Q4

REPORT INFORMATION
  Report Type: 
  Country: None (occurrence: None)
  Receive Date: 20091231
  Receipt Date: 20091223
  Transmission Date: 20100525
  Serious: Yes (Hospitalization, Other)
  Sender: FDA-Public Use
  Company Number: CA-ABBOTT-09P-028-0616239-00

PATIENT
  Sex: Female
  Weight: 56.75 kg

DRUGS (1)
  1. HUMIRA [Suspect]
     Indication: CROHN'S DISEASE
     Route: 058
     Dates: start: 20081212

REACTIONS (5)
  - ABDOMINAL PAIN LOWER [None]
  - ABSCESS INTESTINAL [None]
  - FEELING OF BODY TEMPERATURE CHANGE [None]
  - RASH [None]
  - WEIGHT DECREASED [None]
